FAERS Safety Report 9869853 (Version 5)
Quarter: 2014Q2

REPORT INFORMATION
  Report Type: Spontaneous
  Country: IT (occurrence: None)
  Receive Date: 20140131
  Receipt Date: 20140421
  Transmission Date: 20141212
  Serious: Yes (Hospitalization)
  Sender: FDA-Public Use
  Company Number: AUR-APL-2014-00719

PATIENT
  Age: 42 Year
  Sex: Male

DRUGS (3)
  1. METFORMIN [Suspect]
     Indication: PRODUCT USED FOR UNKNOWN INDICATION
     Route: 048
     Dates: start: 20131004, end: 20131004
  2. NOVOMIX [Suspect]
     Indication: PRODUCT USED FOR UNKNOWN INDICATION
     Route: 058
     Dates: start: 20131004, end: 20131004
  3. LANTUS (INSULIN GLARGINE) [Concomitant]

REACTIONS (6)
  - Hypoglycaemic coma [None]
  - Overdose [None]
  - Suicide attempt [None]
  - Intentional overdose [None]
  - Affective disorder [None]
  - Drug abuse [None]
